FAERS Safety Report 18987369 (Version 1)
Quarter: 2021Q1

REPORT INFORMATION
  Report Type: Spontaneous
  Country: GB (occurrence: GB)
  Receive Date: 20210309
  Receipt Date: 20210309
  Transmission Date: 20210420
  Serious: Yes (Other)
  Sender: FDA-Public Use
  Company Number: GB-TEVA-2021-GB-1885740

PATIENT
  Age: 89 Year
  Sex: Male

DRUGS (3)
  1. PREDNISOLONE. [Suspect]
     Active Substance: PREDNISOLONE
     Indication: POLYMYALGIA RHEUMATICA
     Dosage: 15MG
     Route: 048
     Dates: start: 20190909
  2. FLUOXETINE [Concomitant]
     Active Substance: FLUOXETINE HYDROCHLORIDE
  3. CORACTEN [Concomitant]
     Active Substance: NIFEDIPINE
     Dosage: 60MG

REACTIONS (4)
  - Skin odour abnormal [Unknown]
  - Urticaria [Unknown]
  - Incorrect dose administered [Unknown]
  - Genital candidiasis [Not Recovered/Not Resolved]

NARRATIVE: CASE EVENT DATE: 20200410
